FAERS Safety Report 10494461 (Version 1)
Quarter: 2014Q4

REPORT INFORMATION
  Report Type: Spontaneous
  Country: JP (occurrence: None)
  Receive Date: 20141001
  Receipt Date: 20141001
  Transmission Date: 20150528
  Serious: Yes (Death, Other)
  Sender: FDA-Public Use
  Company Number: JP-ZYDUS-005038

PATIENT
  Age: 52 Year
  Sex: Female

DRUGS (1)
  1. RISPERIDONE. [Suspect]
     Active Substance: RISPERIDONE
     Indication: MENTAL DISORDER
     Dates: start: 20120108

REACTIONS (4)
  - Toxicity to various agents [None]
  - Intentional overdose [None]
  - Blood ethanol increased [None]
  - Sudden death [None]
